FAERS Safety Report 4341549-X (Version None)
Quarter: 2004Q2

REPORT INFORMATION
  Report Type: 
  Country: None (occurrence: None)
  Receive Date: 20040419
  Receipt Date: 20040419
  Transmission Date: 20050107
  Serious: Yes (Other)
  Sender: FDA-Public Use
  Company Number: None

PATIENT
  Age: 41 Year
  Sex: Male
  Weight: 90.7194 kg

DRUGS (1)
  1. PAXIL [Suspect]
     Indication: STRESS SYMPTOMS
     Dosage: DAILY
     Dates: start: 19991101, end: 20040412

REACTIONS (1)
  - DRUG WITHDRAWAL SYNDROME [None]
